FAERS Safety Report 5714615-1 (Version None)
Quarter: 2008Q2

REPORT INFORMATION
  Report Type: 
  Country: None (occurrence: None)
  Receive Date: 20080423
  Receipt Date: 20080416
  Transmission Date: 20081010
  Serious: Yes (Hospitalization, Disabling)
  Sender: FDA-Public Use
  Company Number: B0490539A

PATIENT
  Age: 15 Year
  Sex: Female

DRUGS (2)
  1. ALBENDAZOLE [Suspect]
     Dosage: 400MG SINGLE DOSE
     Route: 048
     Dates: start: 20070616, end: 20070616
  2. DIETHYLCARBAMAZINE CITRATE [Suspect]
     Dosage: 300MG SINGLE DOSE
     Route: 048
     Dates: start: 20070616, end: 20070616

REACTIONS (7)
  - BLINDNESS [None]
  - CONDITION AGGRAVATED [None]
  - DEHYDRATION [None]
  - GASTRITIS [None]
  - HEADACHE [None]
  - VISUAL ACUITY REDUCED [None]
  - VOMITING [None]
